FAERS Safety Report 9113329 (Version 1)
Quarter: 2013Q1

REPORT INFORMATION
  Report Type: Spontaneous
  Country: DE (occurrence: DE)
  Receive Date: 20130131
  Receipt Date: 20130131
  Transmission Date: 20140127
  Serious: Yes (Hospitalization)
  Sender: FDA-Public Use
  Company Number: DE-ASTRAZENECA-2013SE04889

PATIENT
  Sex: Male

DRUGS (2)
  1. CANDESARTAN [Suspect]
     Route: 048
     Dates: end: 20120622
  2. BISOPROLOL [Suspect]
     Route: 065

REACTIONS (2)
  - Penile swelling [Unknown]
  - Testicular swelling [Unknown]
